FAERS Safety Report 23261333 (Version 5)
Quarter: 2024Q1

REPORT INFORMATION
  Report Type: Report from Study
  Country: US (occurrence: US)
  Receive Date: 20231205
  Receipt Date: 20240327
  Transmission Date: 20240410
  Serious: Yes (Hospitalization, Other)
  Sender: FDA-Public Use
  Company Number: US-INSMED, INC.-2023-03802-US

PATIENT
  Sex: Female

DRUGS (4)
  1. ARIKAYCE [Suspect]
     Active Substance: AMIKACIN
     Indication: Mycobacterial infection
     Dosage: 590 MILLIGRAM, QD
     Route: 055
     Dates: start: 202108
  2. ARIKAYCE [Suspect]
     Active Substance: AMIKACIN
     Dosage: UNK UNK, UNK
     Route: 055
     Dates: start: 202305, end: 202305
  3. ARIKAYCE [Suspect]
     Active Substance: AMIKACIN
     Dosage: 590 MILLIGRAM, QD
     Route: 055
     Dates: start: 2023
  4. MECLIZINE [Suspect]
     Active Substance: MECLIZINE HYDROCHLORIDE
     Indication: Dizziness
     Dosage: 1/4 OF A TABLET, UNK
     Route: 065
     Dates: start: 2023

REACTIONS (24)
  - Hospitalisation [Unknown]
  - Fall [Unknown]
  - Wrist fracture [Unknown]
  - Weight decreased [Not Recovered/Not Resolved]
  - Deafness [Not Recovered/Not Resolved]
  - Drug intolerance [Unknown]
  - Arthritis [Unknown]
  - Joint injury [Unknown]
  - Limb injury [Unknown]
  - General physical condition abnormal [Not Recovered/Not Resolved]
  - Quality of life decreased [Unknown]
  - Fall [Unknown]
  - Tooth disorder [Unknown]
  - Somnolence [Unknown]
  - Ear discomfort [Not Recovered/Not Resolved]
  - Urticaria [Unknown]
  - Head discomfort [Unknown]
  - Vertigo [Not Recovered/Not Resolved]
  - Asthenia [Not Recovered/Not Resolved]
  - Dizziness [Not Recovered/Not Resolved]
  - Balance disorder [Not Recovered/Not Resolved]
  - Unevaluable event [Not Recovered/Not Resolved]
  - Dyspnoea [Not Recovered/Not Resolved]
  - Product packaging difficult to open [Unknown]

NARRATIVE: CASE EVENT DATE: 20230101
